FAERS Safety Report 23603123 (Version 2)
Quarter: 2024Q1

REPORT INFORMATION
  Report Type: Spontaneous
  Country: CN (occurrence: CN)
  Receive Date: 20240306
  Receipt Date: 20240307
  Transmission Date: 20240410
  Serious: Yes (Other)
  Sender: FDA-Public Use
  Company Number: CN-JNJFOC-20240307022

PATIENT
  Sex: Female
  Weight: 1.2 kg

DRUGS (3)
  1. CHILDRENS MOTRIN [Suspect]
     Active Substance: IBUPROFEN
     Indication: Cardiac disorder
     Dosage: ROUTE: TUBE FEEDING
     Route: 065
     Dates: start: 20240222
  2. CHILDRENS MOTRIN [Suspect]
     Active Substance: IBUPROFEN
     Indication: Patent ductus arteriosus
     Dosage: ROUTE: TUBE FEEDING
     Route: 065
     Dates: start: 20240223
  3. CHILDRENS MOTRIN [Suspect]
     Active Substance: IBUPROFEN
     Dosage: ROUTE: TUBE FEEDING
     Route: 065
     Dates: start: 20240225

REACTIONS (2)
  - Off label use [Unknown]
  - Lower gastrointestinal haemorrhage [Recovered/Resolved]

NARRATIVE: CASE EVENT DATE: 20240222
